FAERS Safety Report 19862046 (Version 12)
Quarter: 2023Q2

REPORT INFORMATION
  Report Type: Report from Study
  Country: US (occurrence: US)
  Receive Date: 20210921
  Receipt Date: 20230607
  Transmission Date: 20230721
  Serious: Yes (Other)
  Sender: FDA-Public Use
  Company Number: US-002147023-NVSC2021US213426

PATIENT
  Sex: Male

DRUGS (1)
  1. COSENTYX [Suspect]
     Active Substance: SECUKINUMAB
     Indication: Product used for unknown indication
     Dosage: 150 MG, QMO
     Route: 030

REACTIONS (8)
  - Parkinson^s disease [Unknown]
  - Psoriasis [Unknown]
  - Rash [Unknown]
  - Cough [Unknown]
  - Infection [Unknown]
  - Nasopharyngitis [Unknown]
  - Product availability issue [Unknown]
  - Incorrect route of product administration [Unknown]
